FAERS Safety Report 9113271 (Version 1)
Quarter: 2013Q1

REPORT INFORMATION
  Report Type: Spontaneous
  Country: US (occurrence: US)
  Receive Date: 20130211
  Receipt Date: 20130211
  Transmission Date: 20140127
  Serious: Yes (Hospitalization, Other)
  Sender: FDA-Public Use
  Company Number: US-ELI_LILLY_AND_COMPANY-US201302000873

PATIENT
  Sex: Male

DRUGS (3)
  1. HUMALOG LISPRO [Suspect]
     Indication: DIABETES MELLITUS
     Dosage: UNK, PRN
  2. LEVEMIR [Concomitant]
  3. FLOMAX [Concomitant]

REACTIONS (5)
  - Myocardial infarction [Unknown]
  - Blood glucose increased [Unknown]
  - Malaise [Unknown]
  - Blood glucose increased [Unknown]
  - Dyspnoea [Unknown]
